FAERS Safety Report 17597334 (Version 3)
Quarter: 2020Q2

REPORT INFORMATION
  Report Type: Spontaneous
  Country: US (occurrence: US)
  Receive Date: 20200330
  Receipt Date: 20200508
  Transmission Date: 20200713
  Serious: No
  Sender: FDA-Public Use
  Company Number: US-HTU-2020US020338

PATIENT
  Sex: Male

DRUGS (1)
  1. VALCHLOR [Suspect]
     Active Substance: MECHLORETHAMINE
     Indication: CUTANEOUS T-CELL LYMPHOMA
     Dosage: UNK, SINGLE
     Route: 061
     Dates: start: 202002, end: 20200314

REACTIONS (6)
  - Application site haemorrhage [Unknown]
  - Application site irritation [Recovering/Resolving]
  - Application site pruritus [Unknown]
  - Application site erosion [Recovering/Resolving]
  - Application site vesicles [Unknown]
  - Furuncle [Unknown]
